FAERS Safety Report 6591305-7 (Version None)
Quarter: 2010Q1

REPORT INFORMATION
  Report Type: 
  Country: None (occurrence: None)
  Receive Date: 20100219
  Receipt Date: 20100209
  Transmission Date: 20100710
  Serious: Yes (Death, Hospitalization)
  Sender: FDA-Public Use
  Company Number: FR-PFIZER INC-2010016725

PATIENT
  Age: 77 Year
  Sex: Male

DRUGS (17)
  1. ZOLOFT [Suspect]
     Indication: DEPRESSION
     Dosage: 50 MG, 1X/DAY
     Route: 048
     Dates: start: 20091224, end: 20100111
  2. TAHOR [Suspect]
     Indication: HYPERCHOLESTEROLAEMIA
     Dosage: 10 MG, 1X/DAY
     Route: 048
     Dates: start: 20091202, end: 20100110
  3. SERESTA [Suspect]
     Indication: DEPRESSION
     Dosage: 10 MG, 1X/DAY
     Route: 048
     Dates: start: 20091203, end: 20091215
  4. SERESTA [Suspect]
     Dosage: 5 MG, 4X/DAY
     Route: 048
     Dates: start: 20091215, end: 20100110
  5. NEXIUM [Suspect]
     Dosage: 20 MG, 1X/DAY
     Route: 048
     Dates: start: 20091202, end: 20100109
  6. KREDEX [Suspect]
     Indication: CARDIAC FAILURE
     Dosage: 6.25 MG, 1X/DAY
     Route: 048
     Dates: start: 20090901, end: 20100117
  7. DISCOTRINE [Suspect]
     Indication: CARDIAC FAILURE
     Dosage: 5 MG, 1X/DAY
     Route: 062
     Dates: start: 20090901, end: 20100111
  8. KARDEGIC [Suspect]
     Indication: ISCHAEMIC HEART DISEASE PROPHYLAXIS
     Dosage: 160 MG, 1X/DAY
     Route: 048
     Dates: start: 20080101, end: 20100111
  9. LASILIX [Suspect]
     Indication: HYPERTENSION
     Dosage: 80 MG, UNK
     Dates: start: 20080101, end: 20091229
  10. LASILIX [Suspect]
     Dosage: 40 MG, UNK
     Dates: start: 20091229, end: 20100106
  11. LEVOTHYROX [Suspect]
     Indication: HYPOTHYROIDISM
     Dosage: 100 UG, 1X/DAY
     Route: 048
     Dates: end: 20100113
  12. DIFFU K [Suspect]
     Indication: HYPOKALAEMIA
     Dosage: 600 MG, 1X/DAY
     Route: 048
     Dates: start: 20080101, end: 20091218
  13. STABLON [Concomitant]
     Indication: DEPRESSION
     Dosage: 12.5 MG, 2X/DAY
     Route: 048
     Dates: start: 20091202, end: 20091223
  14. KAYEXALATE [Concomitant]
     Indication: HYPERCHOLESTEROLAEMIA
     Dosage: 1 DF, 1X/DAY
     Route: 048
     Dates: start: 20091218, end: 20091218
  15. KAYEXALATE [Concomitant]
     Dosage: 1 DF, 1X/DAY
     Dates: start: 20091220, end: 20091220
  16. KAYEXALATE [Concomitant]
     Dosage: 1 DF, 1X/DAY
     Dates: start: 20091226, end: 20091226
  17. ATARAX [Concomitant]
     Indication: DEPRESSION
     Dosage: UNK
     Dates: end: 20091202

REACTIONS (1)
  - DISSEMINATED INTRAVASCULAR COAGULATION [None]
